FAERS Safety Report 24968466 (Version 1)
Quarter: 2025Q1

REPORT INFORMATION
  Report Type: Spontaneous
  Country: US (occurrence: US)
  Receive Date: 20250214
  Receipt Date: 20250214
  Transmission Date: 20250409
  Serious: No
  Sender: Unknown Manufacturer
  Company Number: US-862174955-ML2025-00609

PATIENT
  Age: 67 Year
  Sex: Female
  Weight: 138 kg

DRUGS (4)
  1. CROMOLYN SODIUM [Suspect]
     Active Substance: CROMOLYN SODIUM
     Indication: Product used for unknown indication
     Dosage: STRENGTH:100MG/5ML
     Route: 048
     Dates: start: 20250130
  2. ELIQUIS [Concomitant]
     Active Substance: APIXABAN
     Indication: Product used for unknown indication
     Dosage: 2 TIMES A DAY
  3. Trelegy Ellipta 25mcg [Concomitant]
     Indication: Product used for unknown indication
     Dosage: ONCE A DAY IN THE MORNING
  4. ALBUTEROL [Concomitant]
     Active Substance: ALBUTEROL
     Indication: Product used for unknown indication

REACTIONS (5)
  - Oxygen saturation decreased [Unknown]
  - Hypopnoea [Recovered/Resolved]
  - Dizziness [Unknown]
  - Incorrect route of product administration [Unknown]
  - Product communication issue [Unknown]

NARRATIVE: CASE EVENT DATE: 20250101
